FAERS Safety Report 6971738-7 (Version None)
Quarter: 2010Q3

REPORT INFORMATION
  Report Type: 
  Country: None (occurrence: None)
  Receive Date: 20100903
  Receipt Date: 20100821
  Transmission Date: 20110219
  Serious: Yes (Hospitalization, Other)
  Sender: FDA-Public Use
  Company Number: 2010AP001807

PATIENT
  Age: 84 Year
  Sex: Female

DRUGS (1)
  1. LISINOPRIL [Suspect]

REACTIONS (3)
  - ANGIOEDEMA [None]
  - DYSPHAGIA [None]
  - RESPIRATORY DISTRESS [None]
